FAERS Safety Report 5572495-1 (Version None)
Quarter: 2007Q4

REPORT INFORMATION
  Report Type: 
  Country: None (occurrence: None)
  Receive Date: 20071222
  Receipt Date: 20071211
  Transmission Date: 20080405
  Serious: Yes (Other)
  Sender: FDA-Public Use
  Company Number: US-PFIZER INC-2007105862

PATIENT
  Sex: Male

DRUGS (4)
  1. CHANTIX [Suspect]
     Indication: EX-SMOKER
     Route: 048
  2. BENICAR [Suspect]
     Indication: HYPERTENSION
     Dosage: DAILY DOSE:40MG
  3. SULAR [Suspect]
     Indication: HYPERTENSION
     Dosage: DAILY DOSE:10MG
  4. NAPRELAN [Concomitant]

REACTIONS (6)
  - DIZZINESS [None]
  - HEADACHE [None]
  - HYPOTENSION [None]
  - HYPOVOLAEMIA [None]
  - NAUSEA [None]
  - PARAESTHESIA [None]
